FAERS Safety Report 9625039 (Version 2)
Quarter: 2014Q1

REPORT INFORMATION
  Report Type: Spontaneous
  Country: US (occurrence: US)
  Receive Date: 20131016
  Receipt Date: 20140219
  Transmission Date: 20141002
  Serious: Yes (Death)
  Sender: FDA-Public Use
  Company Number: US-BRISTOL-MYERS SQUIBB COMPANY-19531763

PATIENT
  Age: 64 Year
  Sex: Male

DRUGS (13)
  1. BYETTA [Suspect]
     Indication: TYPE 2 DIABETES MELLITUS
     Dates: start: 20070217, end: 200705
  2. JANUVIA [Suspect]
     Indication: TYPE 2 DIABETES MELLITUS
     Dates: start: 20061204, end: 200804
  3. LORTAB [Concomitant]
     Dosage: 10/500
  4. ASPIRIN [Concomitant]
  5. POTASSIUM CHLORIDE [Concomitant]
  6. LANTUS [Concomitant]
     Dosage: 100 UNITS
     Route: 058
  7. LOVASTATIN [Concomitant]
     Dosage: 40 UNITS AT BEDTIME
  8. COREG [Concomitant]
  9. PROZAC [Concomitant]
  10. METFORMIN [Concomitant]
  11. BUMEX [Concomitant]
     Dosage: 6 MG IN THE MORNING AND 8 MG AT?BEDTIME,
  12. LISINOPRIL [Concomitant]
  13. COUMADIN [Concomitant]

REACTIONS (1)
  - Pancreatic carcinoma [Fatal]
